FAERS Safety Report 16482528 (Version 1)
Quarter: 2019Q2

REPORT INFORMATION
  Report Type: Spontaneous
  Country: CA (occurrence: CA)
  Receive Date: 20190627
  Receipt Date: 20190627
  Transmission Date: 20190711
  Serious: Yes (Other)
  Sender: FDA-Public Use
  Company Number: CA-HORIZON-RAV-0188-2019

PATIENT
  Age: 41 Year
  Sex: Female

DRUGS (8)
  1. RAVICTI [Suspect]
     Active Substance: GLYCEROL PHENYLBUTYRATE
     Indication: ORNITHINE TRANSCARBAMOYLASE DEFICIENCY
     Dosage: 3.5 ML, 3 X DAY
     Route: 048
     Dates: start: 20110414
  2. CALCIUM [Concomitant]
     Active Substance: CALCIUM
     Route: 048
  3. VITAMIN B12 [Concomitant]
     Active Substance: CYANOCOBALAMIN
  4. VITAMIN D [Concomitant]
     Active Substance: VITAMIN D NOS
     Route: 048
  5. MULTIVITAMINS [Concomitant]
     Active Substance: VITAMINS
     Route: 048
  6. PHOSPHATE [Concomitant]
     Active Substance: UNSPECIFIED INGREDIENT
  7. L-CITRULLINE [Concomitant]
     Active Substance: CITRULLINE
  8. TYLENOL [Concomitant]
     Active Substance: ACETAMINOPHEN
     Route: 048

REACTIONS (1)
  - Ammonia increased [Unknown]

NARRATIVE: CASE EVENT DATE: 20190517
